FAERS Safety Report 5384332-9 (Version None)
Quarter: 2007Q3

REPORT INFORMATION
  Report Type: 
  Country: None (occurrence: None)
  Receive Date: 20070710
  Receipt Date: 20060810
  Transmission Date: 20080115
  Serious: Yes (Other)
  Sender: FDA-Public Use
  Company Number: 2006-02071

PATIENT
  Age: 70 Year
  Sex: Male

DRUGS (2)
  1. VELCADE [Suspect]
     Indication: MULTIPLE MYELOMA
     Dosage: 1.30 MG/M2, INTRAVENOUS
     Route: 042
  2. DEXAMETHASONE 0.5MG TAB [Concomitant]

REACTIONS (2)
  - THROMBOCYTOPENIA [None]
  - TRANSAMINASES INCREASED [None]
